FAERS Safety Report 5415688-6 (Version None)
Quarter: 2007Q3

REPORT INFORMATION
  Report Type: 
  Country: None (occurrence: None)
  Receive Date: 20070731
  Receipt Date: 20070606
  Transmission Date: 20080115
  Serious: No
  Sender: FDA-Public Use
  Company Number: US200706000217

PATIENT
  Sex: Male

DRUGS (4)
  1. BYETTA [Suspect]
     Indication: TYPE 2 DIABETES MELLITUS
     Dosage: 5 UG, SUBCUTANEOUS
     Route: 058
     Dates: start: 20070501, end: 20070604
  2. GLUCOPHAGE [Concomitant]
  3. INDOCIN [Concomitant]
  4. UROCIT-K (POTASSIUM CITRATE) [Concomitant]

REACTIONS (7)
  - DECREASED APPETITE [None]
  - FATIGUE [None]
  - LETHARGY [None]
  - NAUSEA [None]
  - RED BLOOD CELLS URINE POSITIVE [None]
  - SLEEP DISORDER [None]
  - WEIGHT DECREASED [None]
